FAERS Safety Report 9717470 (Version 1)
Quarter: 2013Q4

REPORT INFORMATION
  Report Type: Spontaneous
  Country: US (occurrence: US)
  Receive Date: 20131127
  Receipt Date: 20131127
  Transmission Date: 20140711
  Serious: No
  Sender: FDA-Public Use
  Company Number: US-GILEAD-2009-0019802

PATIENT
  Age: 60 Year
  Sex: Female
  Weight: 56.7 kg

DRUGS (8)
  1. LETAIRIS [Suspect]
     Indication: PULMONARY ARTERIAL HYPERTENSION
     Route: 048
     Dates: start: 20081211
  2. REVATIO [Concomitant]
  3. LASIX [Concomitant]
  4. COZAAR [Concomitant]
  5. CELLCEPT [Concomitant]
  6. BACTRIM [Concomitant]
  7. NEXIUM [Concomitant]
  8. ALLEGRA [Concomitant]

REACTIONS (1)
  - Oedema peripheral [Recovered/Resolved]
